FAERS Safety Report 4320893-6 (Version None)
Quarter: 2004Q1

REPORT INFORMATION
  Report Type: 
  Country: None (occurrence: None)
  Receive Date: 20040318
  Receipt Date: 20040311
  Transmission Date: 20041129
  Serious: Yes (Death, Hospitalization)
  Sender: FDA-Public Use
  Company Number: 2004-03-0389

PATIENT
  Age: 50 Year
  Sex: Male

DRUGS (16)
  1. PEG-INTRON [Suspect]
     Indication: HEPATITIS C
     Dosage: 150 MCG QW SUBCUTANEOUS
     Route: 058
     Dates: start: 20031117
  2. REBETOL [Suspect]
     Indication: HEPATITIS C
     Dosage: 1200 MG QD ORAL
     Route: 048
     Dates: start: 20030925
  3. LASIX [Concomitant]
  4. SPIRONOLACTONE [Concomitant]
  5. EPOGEN [Concomitant]
  6. NEUPOGEN [Concomitant]
  7. GLUCOTROL XL [Concomitant]
  8. LANTUS [Concomitant]
  9. REMERON [Concomitant]
  10. XANAX [Concomitant]
  11. VITAMIN B-12 [Concomitant]
  12. CHROMIUM [Concomitant]
  13. FOLIC ACID [Concomitant]
  14. VITAMIN C [Concomitant]
  15. VITAMIN E [Concomitant]
  16. POTASSIUM SUPPLEMENT (NOS) [Concomitant]

REACTIONS (3)
  - PNEUMONIA [None]
  - PULMONARY OEDEMA [None]
  - SEPSIS [None]
